FAERS Safety Report 17414548 (Version 1)
Quarter: 2020Q1

REPORT INFORMATION
  Report Type: Spontaneous
  Country: FR (occurrence: FR)
  Receive Date: 20200213
  Receipt Date: 20200213
  Transmission Date: 20200409
  Serious: Yes (Hospitalization, Other)
  Sender: FDA-Public Use
  Company Number: FR-PFIZER INC-2020057606

PATIENT
  Age: 53 Year
  Sex: Female
  Weight: 95 kg

DRUGS (14)
  1. CELLCEPT [Concomitant]
     Active Substance: MYCOPHENOLATE MOFETIL\MYCOPHENOLATE MOFETIL HYDROCHLORIDE
     Dosage: UNK
  2. LEDERFOLINE [Concomitant]
     Active Substance: LEUCOVORIN CALCIUM
     Dosage: UNK
  3. TOUJEO [Concomitant]
     Active Substance: INSULIN GLARGINE
     Dosage: UNK
  4. HUMALOG [Concomitant]
     Active Substance: INSULIN LISPRO
     Dosage: UNK
  5. VILDAGLIPTINE [Concomitant]
     Active Substance: VILDAGLIPTIN
     Dosage: UNK
  6. OROCAL [CALCIUM CARBONATE] [Concomitant]
     Dosage: UNK
  7. CORTANCYL [Suspect]
     Active Substance: PREDNISONE
     Indication: TRANSPLANT REJECTION
     Dosage: 35 MG, UNK
     Route: 048
     Dates: start: 20190807
  8. EUPRESSYL [URAPIDIL HYDROCHLORIDE] [Concomitant]
     Active Substance: URAPIDIL HYDROCHLORIDE
     Dosage: UNK
  9. SOLU-MEDROL [Suspect]
     Active Substance: METHYLPREDNISOLONE SODIUM SUCCINATE
     Indication: TRANSPLANT REJECTION
     Dosage: 500 MG, UNK
     Route: 042
     Dates: start: 20190816, end: 20190818
  10. ADVAGRAF [Suspect]
     Active Substance: TACROLIMUS
     Indication: RENAL TRANSPLANT
     Dosage: 7.5 MG, UNK
     Route: 048
     Dates: start: 20190806
  11. GALVUS [Concomitant]
     Active Substance: VILDAGLIPTIN
     Dosage: UNK
  12. EUPANTOL [Concomitant]
     Active Substance: PANTOPRAZOLE SODIUM
     Dosage: UNK
  13. BACTRIM [Concomitant]
     Active Substance: SULFAMETHOXAZOLE\TRIMETHOPRIM
     Dosage: UNK
  14. PARACETAMOL [Concomitant]
     Active Substance: ACETAMINOPHEN
     Dosage: UNK

REACTIONS (1)
  - Diabetes mellitus inadequate control [Recovered/Resolved]

NARRATIVE: CASE EVENT DATE: 20190818
